FAERS Safety Report 7349961-1 (Version None)
Quarter: 2011Q1

REPORT INFORMATION
  Report Type: 
  Country: None (occurrence: None)
  Receive Date: 20110314
  Receipt Date: 20110309
  Transmission Date: 20110831
  Serious: Yes (Other)
  Sender: FDA-Public Use
  Company Number: JP-ROCHE-763247

PATIENT
  Age: 31 Year
  Sex: Female
  Weight: 47 kg

DRUGS (7)
  1. METHOTREXATE [Concomitant]
     Dates: start: 20101117
  2. ACTEMRA [Suspect]
     Indication: MUSCULOSKELETAL PAIN
     Dosage: DOSAGE IS UNCERTAIN
     Route: 041
     Dates: start: 20110223
  3. TAKEPRON [Concomitant]
     Dates: start: 20101020
  4. HYPEN [Concomitant]
     Dates: start: 20100310
  5. GLAKAY [Concomitant]
     Dates: start: 20100818
  6. FOLIAMIN [Concomitant]
     Dates: start: 20101117
  7. MUCOSTA [Concomitant]
     Dates: start: 20090318

REACTIONS (2)
  - INFUSION RELATED REACTION [None]
  - ATROPHIC GLOSSITIS [None]
